FAERS Safety Report 15226904 (Version 2)
Quarter: 2018Q3

REPORT INFORMATION
  Report Type: Spontaneous
  Country: CH (occurrence: CH)
  Receive Date: 20180801
  Receipt Date: 20180803
  Transmission Date: 20181010
  Serious: Yes (Other)
  Sender: FDA-Public Use
  Company Number: CH-AMGEN-CHESP2018105400

PATIENT
  Age: 71 Year
  Sex: Female
  Weight: 61 kg

DRUGS (4)
  1. PROLIA [Suspect]
     Active Substance: DENOSUMAB
     Dosage: UNK
     Route: 065
     Dates: start: 2016
  2. PREDNISON [Concomitant]
     Active Substance: PREDNISONE
  3. METHOTREXAT [Concomitant]
     Active Substance: METHOTREXATE
  4. PROLIA [Suspect]
     Active Substance: DENOSUMAB
     Indication: OSTEOPOROSIS
     Dosage: UNK
     Route: 065
     Dates: start: 201308, end: 2015

REACTIONS (7)
  - Renal impairment [Unknown]
  - Sciatica [Recovering/Resolving]
  - Flatback syndrome [Unknown]
  - Lumbar spinal stenosis [Unknown]
  - Pseudarthrosis [Unknown]
  - Kyphosis [Unknown]
  - Spondylolisthesis [Unknown]

NARRATIVE: CASE EVENT DATE: 2015
